FAERS Safety Report 7452953-5 (Version None)
Quarter: 2011Q2

REPORT INFORMATION
  Report Type: 
  Country: None (occurrence: None)
  Receive Date: 20110502
  Receipt Date: 20110302
  Transmission Date: 20111010
  Serious: No
  Sender: FDA-Public Use
  Company Number: US-ASTRAZENECA-2010SE57668

PATIENT
  Age: 39 Year
  Sex: Female

DRUGS (1)
  1. NEXIUM [Suspect]
     Route: 048

REACTIONS (8)
  - GASTROOESOPHAGEAL REFLUX DISEASE [None]
  - DRUG DOSE OMISSION [None]
  - HAEMATEMESIS [None]
  - WRONG DRUG ADMINISTERED [None]
  - ABDOMINAL PAIN UPPER [None]
  - NECK PAIN [None]
  - HYPOAESTHESIA [None]
  - RETCHING [None]
